FAERS Safety Report 13968267 (Version 1)
Quarter: 2017Q3

REPORT INFORMATION
  Report Type: Spontaneous
  Country: US (occurrence: US)
  Receive Date: 20170914
  Receipt Date: 20170914
  Transmission Date: 20171128
  Serious: No
  Sender: FDA-Public Use
  Company Number: US-PERRIGO-16US021977

PATIENT
  Age: 66 Year
  Sex: Female
  Weight: 62.13 kg

DRUGS (2)
  1. ALLEGRA [Concomitant]
     Active Substance: FEXOFENADINE HYDROCHLORIDE
     Indication: NASAL CONGESTION
     Dosage: UNKNOWN, UNKNOWN
     Route: 048
     Dates: start: 2015
  2. MINOXIDIL. [Suspect]
     Active Substance: MINOXIDIL
     Indication: ALOPECIA
     Dosage: 1 ML, BID
     Route: 061
     Dates: start: 2011, end: 20161116

REACTIONS (1)
  - Hair colour changes [Not Recovered/Not Resolved]

NARRATIVE: CASE EVENT DATE: 201610
